FAERS Safety Report 5168992-3 (Version None)
Quarter: 2006Q4

REPORT INFORMATION
  Report Type: 
  Country: None (occurrence: None)
  Receive Date: 20061211
  Receipt Date: 20061201
  Transmission Date: 20070319
  Serious: Yes (Hospitalization)
  Sender: FDA-Public Use
  Company Number: DE-AVENTIS-200613524DE

PATIENT
  Sex: Female
  Weight: 3.35 kg

DRUGS (3)
  1. CLEXANE [Suspect]
     Indication: VEIN DISORDER
     Route: 064
     Dates: start: 20060125, end: 20060421
  2. CLEXANE [Suspect]
     Indication: VARICOSE VEIN
     Route: 064
     Dates: start: 20060125, end: 20060421
  3. KALINOR-BRAUSETABLETTEN [Concomitant]
     Dosage: DOSE: NOT REPORTED
     Route: 064
     Dates: end: 20060421

REACTIONS (1)
  - NEONATAL DISORDER [None]
